FAERS Safety Report 8283389-5 (Version None)
Quarter: 2012Q2

REPORT INFORMATION
  Report Type: 
  Country: None (occurrence: None)
  Receive Date: 20120413
  Receipt Date: 20120404
  Transmission Date: 20120825
  Serious: Yes (Hospitalization)
  Sender: FDA-Public Use
  Company Number: JP-MPIJNJ-2012-00606

PATIENT

DRUGS (3)
  1. DEXAMETHASONE [Concomitant]
     Dosage: 20 MG, UNK
  2. VELCADE [Suspect]
     Indication: PRODUCT USED FOR UNKNOWN INDICATION
     Dosage: 1.3 MG/M2, UNK
     Route: 042
     Dates: start: 20120104, end: 20120104
  3. SITAGLIPTIN PHOSPHATE [Suspect]
     Indication: PRODUCT USED FOR UNKNOWN INDICATION
     Route: 048

REACTIONS (5)
  - PLATELET COUNT DECREASED [None]
  - PYREXIA [None]
  - AMYLASE INCREASED [None]
  - VOMITING [None]
  - LIPASE INCREASED [None]
